FAERS Safety Report 4295598-0 (Version None)
Quarter: 2004Q1

REPORT INFORMATION
  Report Type: 
  Country: None (occurrence: None)
  Receive Date: 20040216
  Receipt Date: 20030725
  Transmission Date: 20041129
  Serious: Yes (Other)
  Sender: FDA-Public Use
  Company Number: US-GLAXOSMITHKLINE-A0418448A

PATIENT

DRUGS (1)
  1. PAXIL [Suspect]
     Route: 065

REACTIONS (4)
  - ANGER [None]
  - DRUG WITHDRAWAL SYNDROME [None]
  - FEELING ABNORMAL [None]
  - PERFORMANCE STATUS DECREASED [None]
